FAERS Safety Report 13311836 (Version 1)
Quarter: 2017Q1

REPORT INFORMATION
  Report Type: Spontaneous
  Country: US (occurrence: US)
  Receive Date: 20170308
  Receipt Date: 20170308
  Transmission Date: 20170428
  Serious: Yes (Hospitalization)
  Sender: FDA-Public Use
  Company Number: None

PATIENT
  Age: 71 Year
  Sex: Male

DRUGS (1)
  1. POMALYST [Suspect]
     Active Substance: POMALIDOMIDE
     Indication: PLASMA CELL MYELOMA
     Route: 048
     Dates: start: 20170204

REACTIONS (5)
  - Pneumonia [None]
  - Sepsis [None]
  - Acute kidney injury [None]
  - Pancytopenia [None]
  - Asthenia [None]

NARRATIVE: CASE EVENT DATE: 20170218
